FAERS Safety Report 21363787 (Version 1)
Quarter: 2022Q3

REPORT INFORMATION
  Report Type: Other
  Country: US (occurrence: None)
  Receive Date: 20220922
  Receipt Date: 20220922
  Transmission Date: 20221027
  Serious: Yes (Other)
  Sender: FDA-Public Use
  Company Number: US-ROCHE-3182806

PATIENT
  Sex: Female

DRUGS (1)
  1. ROZLYTREK [Suspect]
     Active Substance: ENTRECTINIB
     Indication: Neoplasm malignant
     Dosage: TAKE 2 CAPSULE(S) BY MOUTH DAILY
     Route: 048

REACTIONS (1)
  - Acute kidney injury [Unknown]
